FAERS Safety Report 13696892 (Version 1)
Quarter: 2017Q2

REPORT INFORMATION
  Report Type: Spontaneous
  Country: US (occurrence: US)
  Receive Date: 20170627
  Receipt Date: 20170627
  Transmission Date: 20170830
  Serious: Yes (Hospitalization)
  Sender: FDA-Public Use
  Company Number: None

PATIENT
  Age: 75 Year
  Sex: Male

DRUGS (1)
  1. ZYTIGA [Suspect]
     Active Substance: ABIRATERONE ACETATE
     Dosage: ?          OTHER DOSE:MG;?
     Route: 048

REACTIONS (2)
  - Therapy cessation [None]
  - Blood urine present [None]

NARRATIVE: CASE EVENT DATE: 20170626
